FAERS Safety Report 7461925-6 (Version None)
Quarter: 2011Q2

REPORT INFORMATION
  Report Type: 
  Country: None (occurrence: None)
  Receive Date: 20110506
  Receipt Date: 20091122
  Transmission Date: 20111010
  Serious: Yes (Death, Hospitalization, Other)
  Sender: FDA-Public Use
  Company Number: US-BAYER-200940623NA

PATIENT
  Age: 85 Year
  Sex: Male
  Weight: 78 kg

DRUGS (17)
  1. NORVASC [Concomitant]
     Dosage: 10 MG, QD
     Route: 048
  2. PLAVIX [Concomitant]
     Dosage: 75 MG, QD
     Route: 048
  3. CEFUROXIME [Concomitant]
     Dosage: UNK
     Dates: start: 20050705
  4. TRASYLOL [Suspect]
     Indication: AORTIC VALVE REPLACEMENT
  5. INSULIN [Concomitant]
     Dosage: UNK
     Route: 042
     Dates: start: 20050705
  6. TEMAZ [Concomitant]
  7. HEPARIN [Concomitant]
     Dosage: UNK
     Dates: start: 20050705
  8. TRICOR [Concomitant]
     Dosage: 160 MG, QD
     Route: 048
  9. NITROGLYCERIN [Concomitant]
     Dosage: TITRATE TO MICROGRAMS/MIN
     Route: 042
     Dates: start: 20050705
  10. ASPIRIN [Concomitant]
     Dosage: 325 MG, QD
     Route: 048
  11. ISORDIL [Concomitant]
     Dosage: 30 MG, DAILY IN THE MORNING.
     Route: 048
  12. MIDAZOLAM [Concomitant]
     Dosage: UNK
     Dates: start: 20050705
  13. ZOCOR [Concomitant]
     Dosage: 40 MG, QD
     Route: 048
  14. FENTANYL [Concomitant]
     Dosage: UNK
     Dates: start: 20050705
  15. ZESTRIL [Concomitant]
     Dosage: 20 MG DAILY AND 5 MG AT NIGHT
     Route: 048
  16. FUROSEMIDE [Concomitant]
     Dosage: 40 MG, UNK
     Route: 042
     Dates: start: 20050705
  17. TRASYLOL [Suspect]
     Indication: CORONARY ARTERY BYPASS
     Dosage: 100 ML IV THEN INFUSION AT 25 CC/HR
     Route: 042
     Dates: start: 20050705, end: 20050705

REACTIONS (13)
  - RENAL INJURY [None]
  - FEAR [None]
  - ANHEDONIA [None]
  - INJURY [None]
  - RENAL FAILURE [None]
  - PAIN [None]
  - MULTI-ORGAN FAILURE [None]
  - EMOTIONAL DISTRESS [None]
  - DEATH [None]
  - RENAL IMPAIRMENT [None]
  - ANXIETY [None]
  - UNEVALUABLE EVENT [None]
  - STRESS [None]
